FAERS Safety Report 17723604 (Version 1)
Quarter: 2020Q2

REPORT INFORMATION
  Report Type: Spontaneous
  Country: FR (occurrence: FR)
  Receive Date: 20200429
  Receipt Date: 20200429
  Transmission Date: 20200714
  Serious: Yes (Hospitalization)
  Sender: FDA-Public Use
  Company Number: FR-MYLANLABS-2020M1036192

PATIENT
  Age: 20 Year
  Sex: Male
  Weight: 39 kg

DRUGS (2)
  1. METHOTREXATE MYLAN [Suspect]
     Active Substance: METHOTREXATE SODIUM
     Indication: OSTEOSARCOMA
     Dosage: 12 GRAM PER SQUARE METRE, QD
     Route: 042
     Dates: start: 20200224
  2. METHOTREXATE MYLAN [Suspect]
     Active Substance: METHOTREXATE SODIUM
     Dosage: UNK

REACTIONS (2)
  - Drug level increased [Recovering/Resolving]
  - Hypometabolism [Unknown]

NARRATIVE: CASE EVENT DATE: 20200224
